FAERS Safety Report 8572414-X (Version None)
Quarter: 2012Q3

REPORT INFORMATION
  Report Type: 
  Country: None (occurrence: None)
  Receive Date: 20120806
  Receipt Date: 20120725
  Transmission Date: 20120928
  Serious: Yes (Other)
  Sender: FDA-Public Use
  Company Number: US-ROCHE-1065333

PATIENT
  Sex: Male
  Weight: 50.848 kg

DRUGS (2)
  1. ACCUTANE [Suspect]
     Indication: ACNE
     Dates: start: 19970101
  2. ACCUTANE [Suspect]
     Dates: start: 19980101, end: 19990101

REACTIONS (4)
  - DEPRESSION [None]
  - INTESTINAL OBSTRUCTION [None]
  - CROHN'S DISEASE [None]
  - SUICIDAL IDEATION [None]
